FAERS Safety Report 24708290 (Version 2)
Quarter: 2025Q1

REPORT INFORMATION
  Report Type: Spontaneous
  Country: US (occurrence: US)
  Receive Date: 20241207
  Receipt Date: 20250326
  Transmission Date: 20250408
  Serious: No
  Sender: SANOFI AVENTIS
  Company Number: US-SA-2024SA360875

PATIENT
  Age: 54 Year
  Sex: Female

DRUGS (2)
  1. DUPIXENT [Suspect]
     Active Substance: DUPILUMAB
     Indication: Neurodermatitis
     Dosage: 300 MG, QOW
     Route: 058
     Dates: start: 20240813
  2. DUPIXENT [Suspect]
     Active Substance: DUPILUMAB
     Indication: Eczema

REACTIONS (7)
  - Stress [Unknown]
  - Anxiety [Unknown]
  - Neurodermatitis [Unknown]
  - Pruritus [Unknown]
  - Scratch [Unknown]
  - Scab [Unknown]
  - Eczema [Unknown]

NARRATIVE: CASE EVENT DATE: 20250201
